FAERS Safety Report 5515162-2 (Version None)
Quarter: 2007Q4

REPORT INFORMATION
  Report Type: 
  Country: None (occurrence: None)
  Receive Date: 20071113
  Receipt Date: 20070124
  Transmission Date: 20080405
  Serious: No
  Sender: FDA-Public Use
  Company Number: A0636875A

PATIENT
  Sex: Female

DRUGS (3)
  1. COREG [Suspect]
     Indication: DRUG USE FOR UNKNOWN INDICATION
     Dosage: 12.5MG TWICE PER DAY
     Route: 048
  2. LOTREL [Concomitant]
  3. BENICAR [Concomitant]

REACTIONS (1)
  - RASH GENERALISED [None]
